FAERS Safety Report 7564832-3 (Version None)
Quarter: 2011Q2

REPORT INFORMATION
  Report Type: 
  Country: None (occurrence: None)
  Receive Date: 20110622
  Receipt Date: 20110103
  Transmission Date: 20111010
  Serious: Yes (Other)
  Sender: FDA-Public Use
  Company Number: US-MYLANLABS-2010S1023469

PATIENT
  Age: 44 Year
  Sex: Male

DRUGS (5)
  1. CLOZAPINE [Suspect]
     Indication: SCHIZOAFFECTIVE DISORDER
     Route: 048
     Dates: start: 20101129, end: 20101209
  2. SENNA [Concomitant]
  3. OMEPRAZOLE [Concomitant]
  4. OXCARBAZEPINE [Concomitant]
  5. LORAZEPAM [Concomitant]

REACTIONS (1)
  - GRANULOCYTOPENIA [None]
